FAERS Safety Report 10844411 (Version 1)
Quarter: 2015Q1

REPORT INFORMATION
  Report Type: Spontaneous
  Country: TR (occurrence: TR)
  Receive Date: 20150220
  Receipt Date: 20150220
  Transmission Date: 20150721
  Serious: Yes (Life-Threatening, Hospitalization, Other)
  Sender: FDA-Public Use
  Company Number: TR-BAYER-2015-023934

PATIENT
  Age: 61 Year
  Sex: Female

DRUGS (6)
  1. LEVODOPA [Suspect]
     Active Substance: LEVODOPA
     Indication: PARKINSON^S DISEASE
     Dosage: UNK
  2. LEVODOPA [Suspect]
     Active Substance: LEVODOPA
     Indication: PARKINSON^S DISEASE
     Dosage: UNK
  3. CIPROFLOXACIN. [Suspect]
     Active Substance: CIPROFLOXACIN
     Indication: PYREXIA
  4. HEPARIN [Suspect]
     Active Substance: HEPARIN SODIUM
     Indication: ANTIPLATELET THERAPY
  5. CIPROFLOXACIN. [Suspect]
     Active Substance: CIPROFLOXACIN
     Indication: DIARRHOEA
     Dosage: 500 MG, BID
     Route: 048
  6. BACLOFEN. [Suspect]
     Active Substance: BACLOFEN
     Indication: PARKINSON^S DISEASE
     Dosage: ON REGULAR BASIS

REACTIONS (9)
  - Tachypnoea [Recovered/Resolved]
  - Vomiting [Recovered/Resolved]
  - Loss of consciousness [Recovered/Resolved]
  - Thrombocytopenia [Recovered/Resolved]
  - Hypoxia [Recovered/Resolved]
  - Nausea [Recovered/Resolved]
  - Hypotension [Recovered/Resolved]
  - Tachycardia [Recovered/Resolved]
  - General physical health deterioration [Recovered/Resolved]
